FAERS Safety Report 11941515 (Version 2)
Quarter: 2016Q1

REPORT INFORMATION
  Report Type: Spontaneous
  Country: FR (occurrence: FR)
  Receive Date: 20160122
  Receipt Date: 20160128
  Transmission Date: 20160526
  Serious: Yes (Death, Life-Threatening)
  Sender: FDA-Public Use
  Company Number: US-ASTRAZENECA-2014SE85782

PATIENT
  Age: 65 Year
  Sex: Male

DRUGS (4)
  1. KOMBOGLYZE [Suspect]
     Active Substance: METFORMIN HYDROCHLORIDE\SAXAGLIPTIN
     Indication: TYPE 2 DIABETES MELLITUS
     Dosage: 2.5 MG/1000 MG, 2 DF QD
     Route: 048
     Dates: start: 20140729, end: 20140922
  2. SIMVASTATIN. [Concomitant]
     Active Substance: SIMVASTATIN
  3. ONGLYZA [Suspect]
     Active Substance: SAXAGLIPTIN HYDROCHLORIDE
     Indication: TYPE 2 DIABETES MELLITUS
     Route: 048
     Dates: start: 201010, end: 20140729
  4. METFORMIN [Concomitant]
     Active Substance: METFORMIN HYDROCHLORIDE

REACTIONS (4)
  - Chromaturia [Unknown]
  - Pancreatitis [Unknown]
  - Pancreatic carcinoma [Fatal]
  - Faeces discoloured [Unknown]

NARRATIVE: CASE EVENT DATE: 20140807
